FAERS Safety Report 9637835 (Version 1)
Quarter: 2013Q4

REPORT INFORMATION
  Report Type: Spontaneous
  Country: US (occurrence: US)
  Receive Date: 20131022
  Receipt Date: 20131022
  Transmission Date: 20140711
  Serious: Yes (Hospitalization)
  Sender: FDA-Public Use
  Company Number: US-PFIZER INC-2013301973

PATIENT
  Age: 43 Year
  Sex: Female
  Weight: 57.14 kg

DRUGS (3)
  1. CHANTIX [Suspect]
     Indication: SMOKING CESSATION THERAPY
     Dosage: 0.5 MG, DAILY
     Dates: start: 20130813, end: 201308
  2. CHANTIX [Suspect]
     Dosage: 0.5 MG, 2X/DAY
     Dates: start: 201308, end: 20131018
  3. CITALOPRAM [Concomitant]
     Indication: PREMENSTRUAL SYNDROME
     Dosage: 40 MG, DAILY

REACTIONS (7)
  - Back disorder [Unknown]
  - Nausea [Not Recovered/Not Resolved]
  - Hostility [Recovered/Resolved]
  - Frustration [Recovered/Resolved]
  - Abnormal behaviour [Recovered/Resolved]
  - Anger [Recovered/Resolved]
  - Irritability [Recovered/Resolved]
